FAERS Safety Report 17584363 (Version 1)
Quarter: 2020Q1

REPORT INFORMATION
  Report Type: Spontaneous
  Country: US (occurrence: US)
  Receive Date: 20200326
  Receipt Date: 20200326
  Transmission Date: 20200409
  Serious: No
  Sender: FDA-Public Use
  Company Number: NVSC2020US081613

PATIENT
  Age: 55 Year
  Sex: Female

DRUGS (2)
  1. XIIDRA [Suspect]
     Active Substance: LIFITEGRAST
     Dosage: 1 DRP, QD
     Route: 047
  2. XIIDRA [Suspect]
     Active Substance: LIFITEGRAST
     Indication: DRY EYE
     Dosage: 1 DRP, BID
     Route: 047
     Dates: start: 20200223

REACTIONS (1)
  - Periorbital oedema [Not Recovered/Not Resolved]

NARRATIVE: CASE EVENT DATE: 20200223
